FAERS Safety Report 9445527 (Version 1)
Quarter: 2013Q3

REPORT INFORMATION
  Report Type: Spontaneous
  Country: US (occurrence: None)
  Receive Date: 20130805
  Receipt Date: 20130805
  Transmission Date: 20140515
  Serious: Yes (Other)
  Sender: FDA-Public Use
  Company Number: US-ALKEM-000106

PATIENT
  Age: 18 Year
  Sex: Female

DRUGS (2)
  1. MYCOPHENOLATE MOFETIL (MYCOPHENOLATE MOFETIL) [Suspect]
     Indication: GOODPASTURE^S SYNDROME
     Route: 048
  2. METHYPREDNISOLONE [Suspect]
     Indication: GOODPASTURE^S SYNDROME

REACTIONS (13)
  - Treatment noncompliance [None]
  - Off label use [None]
  - Headache [None]
  - Asthenia [None]
  - Nausea [None]
  - Cough [None]
  - Syncope [None]
  - Anaemia [None]
  - Glomerulonephritis [None]
  - Necrosis [None]
  - Lung infiltration [None]
  - Computerised tomogram abnormal [None]
  - Pulmonary function test abnormal [None]
